FAERS Safety Report 18335991 (Version 1)
Quarter: 2020Q4

REPORT INFORMATION
  Report Type: Spontaneous
  Country: FR (occurrence: FR)
  Receive Date: 20201001
  Receipt Date: 20201001
  Transmission Date: 20210113
  Serious: Yes (Other)
  Sender: FDA-Public Use
  Company Number: NVSC2020FR253150

PATIENT
  Age: 73 Year
  Sex: Male

DRUGS (1)
  1. CIPROFLOXACIN. [Suspect]
     Active Substance: CIPROFLOXACIN
     Indication: AEROMONAS INFECTION
     Dosage: 750 MG, BID
     Route: 065

REACTIONS (2)
  - Drug resistance [Unknown]
  - Pathogen resistance [Unknown]
